FAERS Safety Report 17211202 (Version 1)
Quarter: 2019Q4

REPORT INFORMATION
  Report Type: Spontaneous
  Country: US (occurrence: US)
  Receive Date: 20191228
  Receipt Date: 20191228
  Transmission Date: 20200122
  Serious: No
  Sender: FDA-Public Use
  Company Number: US-009507513-1912USA010933

PATIENT
  Age: 58 Year
  Sex: Female

DRUGS (7)
  1. MEMANTINE. [Concomitant]
     Active Substance: MEMANTINE
     Dosage: 10 MILLIGRAM 2 TIMES A DAY
  2. TIMOLOL MALEATE. [Concomitant]
     Active Substance: TIMOLOL MALEATE
     Dosage: SOLUTION, 0.5 PERCENT IN BOTH EYES
  3. M-M-R II [Suspect]
     Active Substance: MEASLES VIRUS STRAIN ENDERS^ ATTENUATED EDMONSTON LIVE ANTIGEN\MUMPS VIRUS STRAIN B LEVEL JERYL LYNN LIVE ANTIGEN\RUBELLA VIRUS STRAIN WISTAR RA 27/3 LIVE ANTIGEN
     Indication: PROPHYLAXIS
     Route: 058
     Dates: start: 20191205
  4. STERILE DILUENT (WATER) [Suspect]
     Active Substance: WATER
     Indication: PROPHYLAXIS
     Dosage: UNK
     Dates: start: 20191205
  5. SYNTHROID [Concomitant]
     Active Substance: LEVOTHYROXINE SODIUM
     Dosage: 112 MICROGRAM ONCE A DAY
  6. DONEPEZIL. [Concomitant]
     Active Substance: DONEPEZIL
     Dosage: 10 MILLIGRAM 1 TIME A DAY
  7. SIMVASTATIN. [Concomitant]
     Active Substance: SIMVASTATIN
     Dosage: 20 MILLIGRAM ONCE A DAY

REACTIONS (1)
  - Rash [Not Recovered/Not Resolved]

NARRATIVE: CASE EVENT DATE: 20191220
